FAERS Safety Report 11719614 (Version 1)
Quarter: 2015Q4

REPORT INFORMATION
  Report Type: Spontaneous
  Country: US (occurrence: None)
  Receive Date: 20151109
  Receipt Date: 20151109
  Transmission Date: 20160304
  Serious: Yes (Disabling)
  Sender: FDA-Public Use
  Company Number: None

PATIENT
  Age: 66 Year
  Sex: Female
  Weight: 88.45 kg

DRUGS (9)
  1. NSAIDS [Concomitant]
     Active Substance: UNSPECIFIED INGREDIENT
  2. MAGNESIUM [Concomitant]
     Active Substance: MAGNESIUM
  3. HTP-5 [Concomitant]
  4. BENADRYL [Concomitant]
     Active Substance: DIPHENHYDRAMINE HYDROCHLORIDE
  5. DAILY VITAMIN [Concomitant]
     Active Substance: VITAMINS
  6. CIPRO [Suspect]
     Active Substance: CIPROFLOXACIN HYDROCHLORIDE
     Indication: CYSTITIS
     Route: 048
  7. AMITRIPTYLINE [Concomitant]
     Active Substance: AMITRIPTYLINE
  8. BIOTIN [Concomitant]
     Active Substance: BIOTIN
  9. PREGALBAN [Concomitant]

REACTIONS (11)
  - Asthenia [None]
  - Balance disorder [None]
  - Fall [None]
  - Insomnia [None]
  - Pain in extremity [None]
  - Activities of daily living impaired [None]
  - Mobility decreased [None]
  - Peripheral swelling [None]
  - Feeling abnormal [None]
  - Tremor [None]
  - Myalgia [None]

NARRATIVE: CASE EVENT DATE: 20150121
